FAERS Safety Report 6205668-5 (Version None)
Quarter: 2009Q2

REPORT INFORMATION
  Report Type: 
  Country: None (occurrence: None)
  Receive Date: 20090527
  Receipt Date: 20090414
  Transmission Date: 20091009
  Serious: No
  Sender: FDA-Public Use
  Company Number: US-ABBOTT-09P-163-0568484-00

PATIENT
  Age: 50 Year
  Sex: Female

DRUGS (2)
  1. SIMCOR [Suspect]
     Indication: BLOOD CHOLESTEROL INCREASED
     Dosage: 500/20MG DAILY AT BEDTIME
     Dates: start: 20090409
  2. ASPIRIN [Concomitant]
     Indication: DRUG USE FOR UNKNOWN INDICATION

REACTIONS (7)
  - CHEST PAIN [None]
  - ERYTHEMA [None]
  - FLUSHING [None]
  - HAEMATOCHEZIA [None]
  - HOT FLUSH [None]
  - PARAESTHESIA [None]
  - PRURITUS [None]
